FAERS Safety Report 16403803 (Version 1)
Quarter: 2019Q2

REPORT INFORMATION
  Report Type: Spontaneous
  Country: IT (occurrence: IT)
  Receive Date: 20190607
  Receipt Date: 20190607
  Transmission Date: 20190711
  Serious: Yes (Other)
  Sender: FDA-Public Use
  Company Number: IT-GLAXOSMITHKLINE-IT2019099936

PATIENT
  Age: 26 Year
  Sex: Male

DRUGS (1)
  1. VOLTAREN [Suspect]
     Active Substance: DICLOFENAC SODIUM
     Indication: BACK PAIN
     Dosage: 1 DF, UNK (TOTAL)
     Route: 030
     Dates: start: 20190426

REACTIONS (2)
  - Pruritus [Recovering/Resolving]
  - Angioedema [Recovering/Resolving]

NARRATIVE: CASE EVENT DATE: 20190426
